FAERS Safety Report 7287968-3 (Version None)
Quarter: 2011Q1

REPORT INFORMATION
  Report Type: 
  Country: None (occurrence: None)
  Receive Date: 20110211
  Receipt Date: 20101227
  Transmission Date: 20110831
  Serious: Yes (Other)
  Sender: FDA-Public Use
  Company Number: US-BAYER-201038076NA

PATIENT
  Sex: Female
  Weight: 88 kg

DRUGS (7)
  1. YAZ [Suspect]
     Indication: ORAL CONTRACEPTION
     Route: 048
     Dates: start: 20080301, end: 20100501
  2. FIORICET [Concomitant]
  3. ANTIINFLAMMATORY/ANTIRHEUMATIC NON-STEROIDS [Concomitant]
     Dosage: UNK UNK, PRN
  4. EFFEXOR [Concomitant]
     Indication: FIBROMYALGIA
     Dosage: UNK
     Dates: start: 20050101
  5. ZEGERID [Concomitant]
  6. AMITIZA [Concomitant]
     Indication: IRRITABLE BOWEL SYNDROME
     Dosage: UNK
     Dates: start: 20050101
  7. GABAPENTIN [Concomitant]
     Indication: FIBROMYALGIA
     Dosage: UNK
     Dates: start: 20080101

REACTIONS (4)
  - ABDOMINAL PAIN [None]
  - BILIARY DYSKINESIA [None]
  - GALLBLADDER CHOLESTEROLOSIS [None]
  - CHOLECYSTITIS CHRONIC [None]
